FAERS Safety Report 9440449 (Version 1)
Quarter: 2013Q3

REPORT INFORMATION
  Report Type: Spontaneous
  Country: US (occurrence: US)
  Receive Date: 20130805
  Receipt Date: 20130805
  Transmission Date: 20140515
  Serious: Yes (Hospitalization)
  Sender: FDA-Public Use
  Company Number: PHHY2013US081512

PATIENT
  Age: 32 Year
  Sex: Male

DRUGS (1)
  1. METHADONE [Suspect]
     Indication: PAIN

REACTIONS (14)
  - Leukoencephalopathy [Recovering/Resolving]
  - Anoxia [Recovering/Resolving]
  - Hypervigilance [Not Recovered/Not Resolved]
  - Hyperreflexia [Recovering/Resolving]
  - Muscle spasticity [Recovering/Resolving]
  - Executive dysfunction [Not Recovered/Not Resolved]
  - Reflexes abnormal [Recovering/Resolving]
  - Memory impairment [Not Recovered/Not Resolved]
  - Confusional state [Not Recovered/Not Resolved]
  - Agitation [Recovering/Resolving]
  - Loss of consciousness [Recovering/Resolving]
  - Hallucination [Recovering/Resolving]
  - Insomnia [Recovering/Resolving]
  - Overdose [Unknown]
